FAERS Safety Report 7988342-4 (Version None)
Quarter: 2011Q4

REPORT INFORMATION
  Report Type: 
  Country: None (occurrence: None)
  Receive Date: 20111216
  Receipt Date: 20111213
  Transmission Date: 20120403
  Serious: Yes (Hospitalization, Other)
  Sender: FDA-Public Use
  Company Number: CA-ABBOTT-11P-028-0844686-00

PATIENT
  Sex: Male
  Weight: 104.42 kg

DRUGS (1)
  1. LUPRON DEPOT [Suspect]
     Indication: PROSTATE CANCER
     Dates: start: 20100303

REACTIONS (5)
  - OEDEMA PERIPHERAL [None]
  - AORTIC EMBOLUS [None]
  - NEOPLASM MALIGNANT [None]
  - LYMPHADENOPATHY [None]
  - SYNCOPE [None]
